FAERS Safety Report 7098131-3 (Version None)
Quarter: 2010Q4

REPORT INFORMATION
  Report Type: 
  Country: None (occurrence: None)
  Receive Date: 20101112
  Receipt Date: 20101029
  Transmission Date: 20110411
  Serious: Yes (Other)
  Sender: FDA-Public Use
  Company Number: PHHY2010CH73079

PATIENT
  Sex: Male
  Weight: 62 kg

DRUGS (6)
  1. ZOMETA [Suspect]
     Indication: PROSTATE CANCER
     Dosage: 0.4 MG, QMO
     Route: 042
     Dates: start: 20081001
  2. LUCRIN [Concomitant]
     Indication: PROSTATE CANCER
  3. CASODEX [Concomitant]
     Indication: PROSTATE CANCER
     Dosage: UNK
  4. DAFALGAN [Concomitant]
     Dosage: 1 G
  5. PAROXETINE HCL [Concomitant]
     Dosage: 20 MG
  6. FENTANYL [Concomitant]
     Dosage: 2.5 MG

REACTIONS (4)
  - DEBRIDEMENT [None]
  - OSTEOMYELITIS [None]
  - OSTEONECROSIS OF JAW [None]
  - TOOTH EXTRACTION [None]
